FAERS Safety Report 12586515 (Version 1)
Quarter: 2016Q3

REPORT INFORMATION
  Report Type: Spontaneous
  Country: US (occurrence: None)
  Receive Date: 20160722
  Receipt Date: 20160722
  Transmission Date: 20161109
  Serious: Yes (Disabling, Other)
  Sender: FDA-Public Use
  Company Number: None

PATIENT
  Age: 39 Year
  Sex: Female
  Weight: 113.4 kg

DRUGS (2)
  1. BENADRYL DYE FREE [Concomitant]
  2. KENOLOG [Suspect]
     Active Substance: TRIAMCINOLONE ACETONIDE
     Indication: INFLAMMATION
     Dosage: INJECTED INTO THIGH MUSCLE
     Route: 030
     Dates: start: 20160607, end: 20160607

REACTIONS (29)
  - Tremor [None]
  - Fatigue [None]
  - Dysstasia [None]
  - Blood pressure increased [None]
  - Dyspnoea [None]
  - Paraesthesia [None]
  - Rash [None]
  - Vomiting [None]
  - Head discomfort [None]
  - Dehydration [None]
  - Headache [None]
  - Blood glucose increased [None]
  - Photopsia [None]
  - Menorrhagia [None]
  - Myopathy [None]
  - Hot flush [None]
  - Crying [None]
  - Visual impairment [None]
  - Inflammation [None]
  - Abdominal pain [None]
  - Impaired work ability [None]
  - Swelling face [None]
  - Muscular weakness [None]
  - Blood pressure abnormal [None]
  - Hypoaesthesia [None]
  - Limb discomfort [None]
  - Anaemia [None]
  - Insomnia [None]
  - Anxiety [None]

NARRATIVE: CASE EVENT DATE: 20160628
